FAERS Safety Report 8499689-X (Version None)
Quarter: 2012Q3

REPORT INFORMATION
  Report Type: 
  Country: None (occurrence: None)
  Receive Date: 20120710
  Receipt Date: 20120706
  Transmission Date: 20120928
  Serious: Yes (Disabling)
  Sender: FDA-Public Use
  Company Number: GB-PFIZER INC-2012162284

PATIENT
  Age: 41 Year
  Sex: Female

DRUGS (2)
  1. MONTELUKAST [Concomitant]
     Indication: ASTHMA
     Dosage: 10 MG, UNK
     Route: 048
     Dates: start: 20120518
  2. VARENICLINE TARTRATE [Suspect]
     Indication: SMOKING CESSATION THERAPY
     Dosage: 1 MG, 2X/DAY
     Route: 048
     Dates: start: 20120522, end: 20120617

REACTIONS (3)
  - CHOKING SENSATION [None]
  - VISION BLURRED [None]
  - ANXIETY [None]
